FAERS Safety Report 8876180 (Version 1)
Quarter: 2012Q4

REPORT INFORMATION
  Report Type: 
  Country: DE (occurrence: DE)
  Receive Date: 20121023
  Receipt Date: 20121023
  Transmission Date: 20130627
  Serious: Yes (Hospitalization, Congenital Anomaly, Other)
  Sender: FDA-Public Use
  Company Number: DE-WATSON-2012-17731

PATIENT
  Sex: Male
  Weight: 5.44 kg

DRUGS (4)
  1. SERTRALINE HYDROCHLORIDE (UNKNOWN) [Suspect]
     Indication: DEPRESSION
     Dosage: 100 mg/d; after wk 8, 59 mg/d
     Route: 064
     Dates: start: 20100101, end: 20111106
  2. FOLIC ACID [Concomitant]
     Indication: PROPHYLAXIS OF NEURAL TUBE DEFECT
     Dosage: UNK
     Route: 064
     Dates: start: 20110213, end: 20111106
  3. EUPHORBIUM COMP [Concomitant]
     Indication: RHINITIS
     Route: 045
  4. AMOXICILLIN                        /00249602/ [Concomitant]
     Indication: STREPTOCOCCUS TEST POSITIVE
     Dosage: UNK
     Route: 042
     Dates: start: 20111106, end: 20111106

REACTIONS (7)
  - Neonatal respiratory distress syndrome [Recovered/Resolved]
  - Large for dates baby [Unknown]
  - Patent ductus arteriosus [Recovering/Resolving]
  - Atrial septal defect [Unknown]
  - Congenital tricuspid valve incompetence [Unknown]
  - Agitation neonatal [Recovered/Resolved]
  - Hypertonia neonatal [Recovered/Resolved]
